FAERS Safety Report 9842957 (Version 2)
Quarter: 2014Q1

REPORT INFORMATION
  Report Type: Spontaneous
  Country: US (occurrence: US)
  Receive Date: 20140124
  Receipt Date: 20140311
  Transmission Date: 20141002
  Serious: Yes (Death, Hospitalization, Other)
  Sender: FDA-Public Use
  Company Number: US-TEVA-458351USA

PATIENT
  Age: 45 Year
  Sex: Female
  Weight: 77.18 kg

DRUGS (10)
  1. FENTORA [Suspect]
     Indication: METASTATIC PAIN
     Dates: start: 20120926
  2. OXYCONTIN [Concomitant]
     Indication: METASTATIC PAIN
     Dosage: 240 MILLIGRAM DAILY;
     Route: 048
  3. SYNTHROID [Concomitant]
     Indication: AUTOIMMUNE THYROIDITIS
  4. SYNTHROID [Concomitant]
     Indication: HYPERTHYROIDISM
  5. ROBAXIN [Concomitant]
     Indication: METASTATIC PAIN
  6. DILAUDID [Concomitant]
     Indication: METASTATIC PAIN
  7. LASIX [Concomitant]
     Indication: ASCITES
  8. CHEMOTHERAPEUTICS NOS [Concomitant]
     Indication: BREAST CANCER
  9. LISIONOPRIL [Concomitant]
  10. OXYCODONE [Concomitant]

REACTIONS (8)
  - Breast cancer metastatic [Fatal]
  - Bone cancer [Fatal]
  - Fracture [Unknown]
  - Femur fracture [Not Recovered/Not Resolved]
  - Mass [Unknown]
  - Investigation [Unknown]
  - Osteoarthritis [Recovered/Resolved with Sequelae]
  - Fall [Unknown]
